APPROVED DRUG PRODUCT: PANTOPRAZOLE SODIUM
Active Ingredient: PANTOPRAZOLE SODIUM
Strength: EQ 20MG BASE
Dosage Form/Route: TABLET, DELAYED RELEASE;ORAL
Application: A215880 | Product #002
Applicant: MANKIND PHARMA LTD
Approved: Apr 25, 2024 | RLD: No | RS: No | Type: DISCN